FAERS Safety Report 24845149 (Version 1)
Quarter: 2025Q1

REPORT INFORMATION
  Report Type: Spontaneous
  Country: CN (occurrence: CN)
  Receive Date: 20250115
  Receipt Date: 20250115
  Transmission Date: 20250409
  Serious: Yes (Hospitalization)
  Sender: Kenvue
  Company Number: CN-KENVUE CANADA INC.-20250102585

PATIENT

DRUGS (3)
  1. CHILDRENS MOTRIN [Suspect]
     Active Substance: IBUPROFEN
     Indication: Pyrexia
     Dosage: 10 MILLILITER, ONCE A DAY
     Route: 048
     Dates: start: 20250103, end: 20250103
  2. HERBALS [Suspect]
     Active Substance: HERBALS
     Indication: Pyrexia
     Dosage: 5 GRAM, 1 DOSAGE FORM, SACHET, THRICE A DAY
     Route: 048
     Dates: start: 20250102, end: 20250102
  3. HERBALS [Suspect]
     Active Substance: HERBALS
     Indication: Pain

REACTIONS (5)
  - Incorrect dose administered [Unknown]
  - Rash [Recovering/Resolving]
  - Pruritus [Recovering/Resolving]
  - Papule [Recovering/Resolving]
  - Lip swelling [Recovering/Resolving]

NARRATIVE: CASE EVENT DATE: 20250103
